FAERS Safety Report 6571735-X (Version None)
Quarter: 2010Q1

REPORT INFORMATION
  Report Type: 
  Country: None (occurrence: None)
  Receive Date: 20100205
  Receipt Date: 20100201
  Transmission Date: 20100710
  Serious: Yes (Other)
  Sender: FDA-Public Use
  Company Number: US-PFIZER INC-2010014173

PATIENT
  Sex: Male
  Weight: 74.842 kg

DRUGS (1)
  1. CELEBREX [Suspect]
     Indication: MUSCLE RELAXANT THERAPY
     Dates: start: 20100113, end: 20100116

REACTIONS (1)
  - RASH VESICULAR [None]
